FAERS Safety Report 8326831-3 (Version None)
Quarter: 2012Q2

REPORT INFORMATION
  Report Type: 
  Country: None (occurrence: None)
  Receive Date: 20120430
  Receipt Date: 20120412
  Transmission Date: 20120825
  Serious: No
  Sender: FDA-Public Use
  Company Number: 2012P1010991

PATIENT

DRUGS (1)
  1. LAMOTRIGINE [Suspect]

REACTIONS (10)
  - PLEURAL EFFUSION [None]
  - IRIDOCELE [None]
  - SEPTIC SHOCK [None]
  - ACUTE PRERENAL FAILURE [None]
  - ANAEMIA [None]
  - ATRIAL FIBRILLATION [None]
  - RENAL FAILURE ACUTE [None]
  - DEPRESSION [None]
  - ULCERATIVE KERATITIS [None]
  - COAGULOPATHY [None]
